FAERS Safety Report 22099668 (Version 1)
Quarter: 2023Q1

REPORT INFORMATION
  Report Type: Spontaneous
  Country: US (occurrence: US)
  Receive Date: 20230315
  Receipt Date: 20230315
  Transmission Date: 20230418
  Serious: Yes (Other)
  Sender: FDA-Public Use
  Company Number: US-La Jolla Pharmaceutical Company-2023TP000010

PATIENT
  Sex: Female

DRUGS (1)
  1. XERAVA [Suspect]
     Active Substance: ERAVACYCLINE DIHYDROCHLORIDE
     Indication: Acinetobacter infection

REACTIONS (3)
  - Deep vein thrombosis [Unknown]
  - Vaginal haemorrhage [Unknown]
  - Off label use [Unknown]
